FAERS Safety Report 8807882 (Version 11)
Quarter: 2014Q2

REPORT INFORMATION
  Report Type: Report from Study
  Country: EG (occurrence: EG)
  Receive Date: 20120925
  Receipt Date: 20140428
  Transmission Date: 20141212
  Serious: Yes (Disabling)
  Sender: FDA-Public Use
  Company Number: EG-ROCHE-CID000000002132865

PATIENT
  Age: 42 Year
  Sex: Male
  Weight: 85 kg

DRUGS (2)
  1. PEG-INTERFERON ALFA 2A [Suspect]
     Indication: CHRONIC HEPATITIS C
     Dosage: LAST DOSE RECEIVED ON 20/8/2012
     Route: 058
     Dates: start: 20120213, end: 20120820
  2. RIBAVIRIN [Suspect]
     Indication: CHRONIC HEPATITIS C
     Route: 048
     Dates: start: 20120213, end: 20120826

REACTIONS (1)
  - Sacroiliitis [Recovering/Resolving]
